FAERS Safety Report 10277659 (Version 1)
Quarter: 2014Q3

REPORT INFORMATION
  Report Type: Spontaneous
  Country: US (occurrence: US)
  Receive Date: 20140704
  Receipt Date: 20140704
  Transmission Date: 20150326
  Serious: No
  Sender: FDA-Public Use
  Company Number: US-009507513-1407USA000089

PATIENT
  Age: 28 Year
  Sex: Female

DRUGS (2)
  1. NEXPLANON [Suspect]
     Active Substance: ETONOGESTREL
     Indication: CONTRACEPTION
     Dosage: 68MG/ ONCE EVERY 3 YEARS
     Route: 059
     Dates: start: 20120831
  2. LEVOTHYROXINE SODIUM. [Concomitant]
     Active Substance: LEVOTHYROXINE SODIUM
     Route: 048

REACTIONS (4)
  - Menorrhagia [Unknown]
  - Device breakage [Unknown]
  - Product quality issue [Unknown]
  - Metrorrhagia [Unknown]

NARRATIVE: CASE EVENT DATE: 20140626
